FAERS Safety Report 12755405 (Version 1)
Quarter: 2016Q3

REPORT INFORMATION
  Report Type: Report from Study
  Country: US (occurrence: US)
  Receive Date: 20160916
  Receipt Date: 20160916
  Transmission Date: 20161109
  Serious: Yes (Hospitalization)
  Sender: FDA-Public Use
  Company Number: US-JNJFOC-20160914330

PATIENT
  Age: 87 Year
  Sex: Male

DRUGS (16)
  1. IBRUTINIB [Suspect]
     Active Substance: IBRUTINIB
     Indication: CHRONIC MYELOID LEUKAEMIA
     Route: 048
     Dates: start: 20160825, end: 20160826
  2. RESTORIL [Concomitant]
     Active Substance: TEMAZEPAM
  3. ZOFRAN [Concomitant]
     Active Substance: ONDANSETRON HYDROCHLORIDE
  4. METOPROLOL. [Concomitant]
     Active Substance: METOPROLOL
  5. ONDANSETRON [Concomitant]
     Active Substance: ONDANSETRON
  6. NYSTATIN. [Concomitant]
     Active Substance: NYSTATIN
  7. FLUCONAZOLE. [Concomitant]
     Active Substance: FLUCONAZOLE
  8. NORCO [Concomitant]
     Active Substance: ACETAMINOPHEN\HYDROCODONE BITARTRATE
  9. ASPIRIN. [Concomitant]
     Active Substance: ASPIRIN
  10. POTASSIUM [Concomitant]
     Active Substance: POTASSIUM
  11. PRAVASTATIN. [Concomitant]
     Active Substance: PRAVASTATIN
  12. PREDNISONE. [Concomitant]
     Active Substance: PREDNISONE
  13. RANITIDINE. [Concomitant]
     Active Substance: RANITIDINE
  14. ALLOPURINOL. [Concomitant]
     Active Substance: ALLOPURINOL
  15. TRIAMCINOLONE [Concomitant]
     Active Substance: TRIAMCINOLONE
  16. LATANOPROST. [Concomitant]
     Active Substance: LATANOPROST

REACTIONS (3)
  - Kidney infection [Not Recovered/Not Resolved]
  - Product use issue [Recovered/Resolved]
  - Off label use [Recovered/Resolved]

NARRATIVE: CASE EVENT DATE: 20160825
